FAERS Safety Report 6741197-8 (Version None)
Quarter: 2010Q2

REPORT INFORMATION
  Report Type: 
  Country: None (occurrence: None)
  Receive Date: 20100525
  Receipt Date: 20100525
  Transmission Date: 20101027
  Serious: No
  Sender: FDA-Public Use
  Company Number: None

PATIENT
  Sex: Female
  Weight: 56.6996 kg

DRUGS (1)
  1. ALLERGY RELIEF GEL SWABS N/A ZICAM [Suspect]
     Indication: NASAL CONGESTION
     Dosage: 1 TUBE 1X EVERY 4 HRS NASAL ABOUT 2 WEEKS IN DEC 2009
     Route: 045

REACTIONS (5)
  - ANOSMIA [None]
  - EPISTAXIS [None]
  - NASAL DRYNESS [None]
  - RHINALGIA [None]
  - SCAB [None]
